FAERS Safety Report 5586682-X (Version None)
Quarter: 2008Q1

REPORT INFORMATION
  Report Type: 
  Country: None (occurrence: None)
  Receive Date: 20080110
  Receipt Date: 20071009
  Transmission Date: 20080703
  Serious: No
  Sender: FDA-Public Use
  Company Number: US-BAYER-US-2007-038055

PATIENT
  Age: 22 Year
  Sex: Female
  Weight: 54 kg

DRUGS (2)
  1. YAZ [Suspect]
     Indication: ORAL CONTRACEPTION
     Route: 048
     Dates: start: 20050901, end: 20070917
  2. PRENATAL VITAMINS [Concomitant]
     Dates: start: 20071003

REACTIONS (1)
  - PREGNANCY ON ORAL CONTRACEPTIVE [None]
